FAERS Safety Report 11777532 (Version 2)
Quarter: 2016Q1

REPORT INFORMATION
  Report Type: Spontaneous
  Country: US (occurrence: US)
  Receive Date: 20151125
  Receipt Date: 20160314
  Transmission Date: 20160525
  Serious: Yes (Other)
  Sender: FDA-Public Use
  Company Number: US-SA-2015SA188319

PATIENT
  Age: 70 Year
  Sex: Female

DRUGS (12)
  1. APIDRA SOLOSTAR [Suspect]
     Active Substance: INSULIN GLULISINE
     Indication: TYPE 2 DIABETES MELLITUS
     Dosage: DOSE:40 UNIT(S)
     Route: 065
     Dates: start: 201306
  2. LANTUS SOLOSTAR [Suspect]
     Active Substance: INSULIN GLARGINE
     Indication: TYPE 2 DIABETES MELLITUS
     Dosage: DOSE:60 UNIT(S)
     Route: 065
  3. SOLOSTAR [Concomitant]
     Active Substance: DEVICE
     Indication: TYPE 2 DIABETES MELLITUS
  4. NOVOLOG [Concomitant]
     Active Substance: INSULIN ASPART
     Dosage: TAKING BEFORE A MEAL AFTER DOING A ^READING^.
  5. FLEXPEN [Concomitant]
     Active Substance: UNSPECIFIED INGREDIENT
  6. NASONEX [Concomitant]
     Active Substance: MOMETASONE FUROATE
  7. METFORMIN [Concomitant]
     Active Substance: METFORMIN HYDROCHLORIDE
  8. LANTUS [Suspect]
     Active Substance: INSULIN GLARGINE
     Indication: TYPE 2 DIABETES MELLITUS
     Dosage: DOSE:60 UNIT(S)
     Route: 065
     Dates: start: 201306
  9. SOLOSTAR [Concomitant]
     Active Substance: DEVICE
     Indication: TYPE 2 DIABETES MELLITUS
     Dates: start: 201306
  10. NOVOLOG [Concomitant]
     Active Substance: INSULIN ASPART
  11. BENADRYL [Concomitant]
     Active Substance: DIPHENHYDRAMINE HYDROCHLORIDE
  12. LANTUS [Suspect]
     Active Substance: INSULIN GLARGINE
     Indication: TYPE 2 DIABETES MELLITUS
     Dosage: DOSE:40 UNIT(S)
     Route: 065

REACTIONS (13)
  - Anaemia [Unknown]
  - Decreased appetite [Unknown]
  - Headache [Unknown]
  - Colorectal cancer [Unknown]
  - Stomal hernia [Unknown]
  - Tremor [Unknown]
  - Off label use [Unknown]
  - Hyperhidrosis [Unknown]
  - Visual impairment [Not Recovered/Not Resolved]
  - Haemoglobin decreased [Unknown]
  - Colostomy [Unknown]
  - Hypoglycaemia [Unknown]
  - Feeling cold [Unknown]

NARRATIVE: CASE EVENT DATE: 201511
